FAERS Safety Report 4320411-2 (Version None)
Quarter: 2004Q1

REPORT INFORMATION
  Report Type: 
  Country: None (occurrence: None)
  Receive Date: 20040319
  Receipt Date: 20040319
  Transmission Date: 20041129
  Serious: Yes (Hospitalization)
  Sender: FDA-Public Use
  Company Number: None

PATIENT
  Age: 43 Year
  Sex: Male
  Weight: 81.6475 kg

DRUGS (11)
  1. PACLITAXEL [Suspect]
     Indication: LARYNGEAL CANCER
     Dosage: 82 MG WEEKLY IV
     Route: 042
     Dates: start: 20040211
  2. PACLITAXEL [Suspect]
     Indication: LARYNGEAL CANCER
     Dosage: 82 MG WEEKLY IV
     Route: 042
     Dates: start: 20040218
  3. PACLITAXEL [Suspect]
     Indication: LARYNGEAL CANCER
     Dosage: 82 MG WEEKLY IV
     Route: 042
     Dates: start: 20040224
  4. CARBOPLATIN [Suspect]
     Dosage: 161 MG WEEKLY IV (CYCLE 2)
     Route: 042
     Dates: start: 20040303
  5. PREDNISONE [Concomitant]
  6. DEPAKOTE [Concomitant]
  7. LOVOX [Concomitant]
  8. PROTONIX [Concomitant]
  9. VICODIN [Concomitant]
  10. AMBIEN [Concomitant]
  11. TRAZODONE HCL [Concomitant]

REACTIONS (4)
  - DEPRESSION [None]
  - INTENTIONAL OVERDOSE [None]
  - MARITAL PROBLEM [None]
  - SUICIDE ATTEMPT [None]
